FAERS Safety Report 25716843 (Version 4)
Quarter: 2025Q4

REPORT INFORMATION
  Report Type: Report from Study
  Country: US (occurrence: US)
  Receive Date: 20250822
  Receipt Date: 20251105
  Transmission Date: 20260117
  Serious: Yes (Hospitalization)
  Sender: ABBVIE
  Company Number: US-ABBVIE-6424158

PATIENT
  Age: 75 Year
  Sex: Female

DRUGS (1)
  1. SKYRIZI [Suspect]
     Active Substance: RISANKIZUMAB-RZAA
     Indication: Product used for unknown indication
     Route: 058
     Dates: start: 20250215

REACTIONS (11)
  - Pneumonia bacterial [Unknown]
  - Joint swelling [Unknown]
  - Arthritis [Not Recovered/Not Resolved]
  - Painful respiration [Unknown]
  - Finger deformity [Unknown]
  - Mass [Unknown]
  - Chest pain [Not Recovered/Not Resolved]
  - Inflammation [Unknown]
  - Pulmonary pain [Unknown]
  - Back pain [Unknown]
  - Musculoskeletal chest pain [Unknown]

NARRATIVE: CASE EVENT DATE: 20250101
